FAERS Safety Report 15896686 (Version 1)
Quarter: 2019Q1

REPORT INFORMATION
  Report Type: Spontaneous
  Country: US (occurrence: US)
  Receive Date: 20190131
  Receipt Date: 20190131
  Transmission Date: 20190417
  Serious: No
  Sender: FDA-Public Use
  Company Number: US-INCYTE CORPORATION-2019IN000725

PATIENT

DRUGS (1)
  1. JAKAFI [Suspect]
     Active Substance: RUXOLITINIB
     Indication: POLYCYTHAEMIA
     Dosage: 5 MG, BID
     Route: 048
     Dates: start: 201812

REACTIONS (4)
  - Hypotension [Recovered/Resolved]
  - Asthenia [Unknown]
  - Dizziness [Recovered/Resolved]
  - Nasopharyngitis [Unknown]
